FAERS Safety Report 7748786-2 (Version None)
Quarter: 2011Q3

REPORT INFORMATION
  Report Type: 
  Country: None (occurrence: None)
  Receive Date: 20110913
  Receipt Date: 20110913
  Transmission Date: 20111222
  Serious: Yes (Hospitalization)
  Sender: FDA-Public Use
  Company Number: None

PATIENT
  Age: 84 Year
  Sex: Male
  Weight: 77 kg

DRUGS (2)
  1. ISOSORBIDE DINITRATE [Suspect]
     Indication: CORONARY ARTERY DISEASE
     Dosage: 5MG TID PO
     Route: 048
     Dates: start: 20110524, end: 20110525
  2. FINASTERIDE [Suspect]
     Indication: BENIGN PROSTATIC HYPERPLASIA
     Dosage: 5 MG EVERY DAY PO
     Route: 048
     Dates: start: 20110515, end: 20110516

REACTIONS (1)
  - ANAPHYLACTIC SHOCK [None]
